FAERS Safety Report 6053148-2 (Version None)
Quarter: 2009Q1

REPORT INFORMATION
  Report Type: 
  Country: None (occurrence: None)
  Receive Date: 20090123
  Receipt Date: 20090109
  Transmission Date: 20090719
  Serious: Yes (Other)
  Sender: FDA-Public Use
  Company Number: 2009156367

PATIENT
  Age: 70 Year
  Sex: Male

DRUGS (1)
  1. FRAGMIN [Suspect]
     Indication: THROMBOSIS PROPHYLAXIS
     Dosage: 5000 IU
     Dates: start: 20081101

REACTIONS (4)
  - HEADACHE [None]
  - MEDICAL DEVICE PAIN [None]
  - THROMBOSIS IN DEVICE [None]
  - TREATMENT FAILURE [None]
